FAERS Safety Report 25250924 (Version 9)
Quarter: 2025Q4

REPORT INFORMATION
  Report Type: Report from Study
  Country: KR (occurrence: KR)
  Receive Date: 20250429
  Receipt Date: 20251106
  Transmission Date: 20260118
  Serious: Yes (Life-Threatening, Hospitalization, Other)
  Sender: AUROBINDO
  Company Number: US-AUROBINDO-AUR-APL-2025-021880

PATIENT
  Age: 78 Year
  Sex: Female
  Weight: 48.5 kg

DRUGS (91)
  1. PRALATREXATE [Suspect]
     Active Substance: PRALATREXATE
     Indication: Peripheral T-cell lymphoma unspecified stage IV
     Dosage: 20 MILLIGRAM/SQ. METER
     Route: 065
     Dates: start: 20241120
  2. PRALATREXATE [Suspect]
     Active Substance: PRALATREXATE
     Dosage: 20 MILLIGRAM/SQ. METER
     Route: 065
     Dates: start: 20241127
  3. PRALATREXATE [Suspect]
     Active Substance: PRALATREXATE
     Dosage: 20 MILLIGRAM/SQ. METER
     Route: 065
     Dates: start: 20241218
  4. PRALATREXATE [Suspect]
     Active Substance: PRALATREXATE
     Dosage: 28.4 MILLIGRAM, ONCE A DAY
     Route: 042
     Dates: start: 20250402
  5. PRALATREXATE [Suspect]
     Active Substance: PRALATREXATE
     Dosage: 20 MILLIGRAM/SQ. METER
     Route: 065
     Dates: start: 20250410, end: 20250410
  6. PRALATREXATE [Suspect]
     Active Substance: PRALATREXATE
     Dosage: 20 MILLIGRAM/SQ. METER
     Route: 065
     Dates: start: 20250502, end: 20250502
  7. PRALATREXATE [Suspect]
     Active Substance: PRALATREXATE
     Dosage: 20 MILLIGRAM/SQ. METER
     Route: 065
     Dates: start: 20250508, end: 20250508
  8. PRALATREXATE [Suspect]
     Active Substance: PRALATREXATE
     Dosage: 20 MILLIGRAM/SQ. METER
     Route: 065
     Dates: start: 20250527, end: 20250527
  9. PRALATREXATE [Suspect]
     Active Substance: PRALATREXATE
     Dosage: 20 MILLIGRAM/SQ. METER
     Route: 065
     Dates: start: 20250604, end: 20250604
  10. PRALATREXATE [Suspect]
     Active Substance: PRALATREXATE
     Dosage: 20 MILLIGRAM/SQ. METER
     Route: 065
     Dates: start: 20250624, end: 20250624
  11. PRALATREXATE [Suspect]
     Active Substance: PRALATREXATE
     Dosage: 13.4 MILLIGRAM/SQ. METER
     Route: 065
     Dates: start: 20250701, end: 20250701
  12. PRALATREXATE [Suspect]
     Active Substance: PRALATREXATE
     Dosage: 13.4 MILLIGRAM/SQ. METER
     Route: 065
     Dates: start: 20250715, end: 20250715
  13. PRALATREXATE [Suspect]
     Active Substance: PRALATREXATE
     Dosage: 18.89 MILLIGRAM/SQ. METER
     Route: 065
     Dates: start: 20250722
  14. CYCLOPHOSPHAMIDE [Suspect]
     Active Substance: CYCLOPHOSPHAMIDE
     Indication: Peripheral T-cell lymphoma unspecified stage IV
     Dosage: 750 MILLIGRAM/SQ. METER
     Route: 065
     Dates: start: 20241120
  15. CYCLOPHOSPHAMIDE [Suspect]
     Active Substance: CYCLOPHOSPHAMIDE
     Dosage: 750 MILLIGRAM/SQ. METER
     Route: 065
     Dates: start: 20241218
  16. CYCLOPHOSPHAMIDE [Suspect]
     Active Substance: CYCLOPHOSPHAMIDE
     Dosage: 1065 MILLIGRAM, ONCE A DAY
     Route: 042
     Dates: start: 20250402, end: 20250527
  17. CYCLOPHOSPHAMIDE [Suspect]
     Active Substance: CYCLOPHOSPHAMIDE
     Dosage: 750 MILLIGRAM
     Route: 042
     Dates: start: 20250502, end: 20250502
  18. CYCLOPHOSPHAMIDE [Suspect]
     Active Substance: CYCLOPHOSPHAMIDE
     Dosage: 750 MILLIGRAM
     Route: 042
     Dates: start: 20250527, end: 20250527
  19. CYCLOPHOSPHAMIDE [Suspect]
     Active Substance: CYCLOPHOSPHAMIDE
     Dosage: 750 MILLIGRAM
     Route: 042
     Dates: start: 20250624, end: 20250624
  20. CYCLOPHOSPHAMIDE [Suspect]
     Active Substance: CYCLOPHOSPHAMIDE
     Dosage: 750 MILLIGRAM/SQ. METER
     Route: 042
     Dates: start: 20250715, end: 20250715
  21. PREDNISONE [Suspect]
     Active Substance: PREDNISONE
     Indication: Peripheral T-cell lymphoma unspecified stage IV
     Dosage: 100 MILLIGRAM
     Route: 065
     Dates: start: 20241120
  22. PREDNISONE [Suspect]
     Active Substance: PREDNISONE
     Dosage: 100 MILLIGRAM
     Route: 065
     Dates: start: 20241121
  23. PREDNISONE [Suspect]
     Active Substance: PREDNISONE
     Dosage: 100 MILLIGRAM
     Route: 065
     Dates: start: 20241122
  24. PREDNISONE [Suspect]
     Active Substance: PREDNISONE
     Dosage: 100 MILLIGRAM
     Route: 065
     Dates: start: 20241123
  25. PREDNISONE [Suspect]
     Active Substance: PREDNISONE
     Dosage: 100 MILLIGRAM
     Route: 065
     Dates: start: 20241123
  26. PREDNISONE [Suspect]
     Active Substance: PREDNISONE
     Dosage: 50 MILLIGRAM, TWO TIMES A DAY
     Route: 048
     Dates: start: 20250402
  27. PREDNISONE [Suspect]
     Active Substance: PREDNISONE
     Dosage: 100 MILLIGRAM, ONCE A DAY
     Route: 048
     Dates: start: 20250402, end: 20250406
  28. PREDNISONE [Suspect]
     Active Substance: PREDNISONE
     Dosage: 100 MILLIGRAM
     Route: 048
     Dates: start: 20250502
  29. PREDNISONE [Suspect]
     Active Substance: PREDNISONE
     Dosage: 100 MILLIGRAM
     Route: 048
     Dates: start: 20250527
  30. PREDNISONE [Suspect]
     Active Substance: PREDNISONE
     Dosage: 100 MILLIGRAM
     Route: 048
     Dates: start: 20250624
  31. PREDNISONE [Suspect]
     Active Substance: PREDNISONE
     Dosage: 100 MILLIGRAM
     Route: 048
     Dates: start: 20250715, end: 20250715
  32. ONCOVIN [Suspect]
     Active Substance: VINCRISTINE SULFATE
     Indication: Peripheral T-cell lymphoma unspecified stage IV
     Dosage: 1.99 MILLIGRAM, ONCE A DAY
     Route: 042
     Dates: start: 20250402, end: 20250402
  33. ONCOVIN [Suspect]
     Active Substance: VINCRISTINE SULFATE
     Dosage: 1.4 MILLIGRAM, ONCE A DAY
     Route: 042
     Dates: start: 20250502, end: 20250502
  34. ONCOVIN [Suspect]
     Active Substance: VINCRISTINE SULFATE
     Dosage: 1.4 MILLIGRAM/SQ. METER, ONCE A DAY
     Route: 042
     Dates: start: 20250715, end: 20250715
  35. Glura m xr [Concomitant]
     Indication: Product used for unknown indication
     Dosage: UNK
     Route: 065
     Dates: start: 2023
  36. FOLIC ACID [Concomitant]
     Active Substance: FOLIC ACID
     Indication: Toxicity to various agents
     Dosage: 1 MILLIGRAM, ONCE A DAY
     Route: 048
     Dates: start: 20250326
  37. Dicamax d plus [Concomitant]
     Indication: Diabetes mellitus
     Dosage: 250 MILLIGRAM, ONCE A DAY
     Route: 048
     Dates: start: 2018
  38. Crerova [Concomitant]
     Indication: Dyslipidaemia
     Dosage: 10 MILLIGRAM, ONCE A DAY
     Route: 048
     Dates: start: 2020
  39. Glitazone [Concomitant]
     Indication: Diabetes mellitus
     Dosage: 15 MILLIGRAM, ONCE A DAY
     Route: 048
     Dates: start: 2018
  40. Olmeduo [Concomitant]
     Indication: Hypertension
     Dosage: 1 DOSAGE FORM, ONCE A DAY
     Route: 048
     Dates: start: 2018
  41. Hemonics [Concomitant]
     Indication: Toxicity to various agents
     Dosage: 1 MILLIGRAM, ONCE A DAY
     Route: 030
     Dates: start: 20250331, end: 20250331
  42. Hemonics [Concomitant]
     Dosage: 1 MILLIGRAM, ONCE A DAY
     Route: 030
     Dates: start: 20250624, end: 20250624
  43. Godex [Concomitant]
     Indication: Product used for unknown indication
     Dosage: 1 DOSAGE FORM, 3 TIMES A DAY
     Route: 048
     Dates: start: 20250331
  44. URSODIOL [Concomitant]
     Active Substance: URSODIOL
     Indication: Product used for unknown indication
     Dosage: 200 MILLIGRAM, 3 TIMES A DAY
     Route: 048
     Dates: start: 20250331
  45. HUMALOG [Concomitant]
     Active Substance: INSULIN LISPRO
     Indication: Product used for unknown indication
     Dosage: 4 INTERNATIONAL UNIT, AS NECESSARY
     Route: 042
     Dates: start: 20250331, end: 20250402
  46. HUMALOG [Concomitant]
     Active Substance: INSULIN LISPRO
     Dosage: 20 INTERNATIONAL UNIT, AS NECESSARY
     Route: 042
     Dates: start: 20250414, end: 20250424
  47. HUMALOG [Concomitant]
     Active Substance: INSULIN LISPRO
     Dosage: 20 INTERNATIONAL UNIT, AS NECESSARY
     Route: 042
     Dates: start: 20250608, end: 20250615
  48. HUMALOG [Concomitant]
     Active Substance: INSULIN LISPRO
     Dosage: 4 INTERNATIONAL UNIT, AS NECESSARY
     Route: 058
     Dates: start: 20250715
  49. Vacrax [Concomitant]
     Indication: Product used for unknown indication
     Dosage: 1 UNIT, AS DIRECTED
     Route: 061
     Dates: start: 20250421, end: 20250421
  50. ONDANSETRON [Concomitant]
     Active Substance: ONDANSETRON
     Indication: Product used for unknown indication
     Dosage: 4 MILLIGRAM, AS DIRECTED
     Route: 042
     Dates: start: 20250402
  51. TEGOPRAZAN [Concomitant]
     Active Substance: TEGOPRAZAN
     Indication: Prophylaxis
     Dosage: 50 MILLIGRAM, AS DIRECTED
     Route: 048
     Dates: start: 20250402
  52. PEGFILGRASTIM [Concomitant]
     Active Substance: PEGFILGRASTIM
     Indication: Neutropenia
     Dosage: 0.6 MILLIGRAM, AS DIRECTED
     Route: 058
     Dates: start: 20250411
  53. AMINO ACIDS\DEXTROSE\ELECTROLYTES NOS\SOYBEAN OIL [Concomitant]
     Active Substance: AMINO ACIDS\DEXTROSE\ELECTROLYTES NOS\SOYBEAN OIL
     Indication: Nutritional supplementation
     Dosage: 50 MILLILITER, ONCE A DAY
     Route: 042
     Dates: start: 20250414, end: 20250424
  54. AMINO ACIDS\DEXTROSE\ELECTROLYTES NOS\SOYBEAN OIL [Concomitant]
     Active Substance: AMINO ACIDS\DEXTROSE\ELECTROLYTES NOS\SOYBEAN OIL
     Dosage: 986 MILLILITER, ONCE A DAY
     Route: 042
     Dates: start: 20250609, end: 20250615
  55. PHENIRAMINE [Concomitant]
     Active Substance: PHENIRAMINE
     Indication: Product used for unknown indication
     Dosage: 4 MILLIGRAM, AS DIRECTED
     Route: 042
     Dates: start: 20250415, end: 20250420
  56. PHENIRAMINE [Concomitant]
     Active Substance: PHENIRAMINE
     Dosage: 4 MILLIGRAM, AS DIRECTED
     Route: 042
     Dates: start: 20250422, end: 20250422
  57. PHENIRAMINE [Concomitant]
     Active Substance: PHENIRAMINE
     Dosage: 4 MILLIGRAM, AS DIRECTED
     Route: 042
     Dates: start: 20250604, end: 20250604
  58. PHENIRAMINE [Concomitant]
     Active Substance: PHENIRAMINE
     Dosage: 4 MILLIGRAM, AS DIRECTED
     Route: 042
     Dates: start: 20250608, end: 20250613
  59. MAGNESIUM SULFATE [Concomitant]
     Active Substance: MAGNESIUM SULFATE
     Indication: Nutritional supplementation
     Dosage: 4 MILLIGRAM, ONCE A DAY
     Route: 042
     Dates: start: 20250415, end: 20250424
  60. MAGNESIUM SULFATE [Concomitant]
     Active Substance: MAGNESIUM SULFATE
     Dosage: 4 GRAM, ONCE A DAY
     Route: 042
     Dates: start: 20250610, end: 20250616
  61. MAGNESIUM SULFATE [Concomitant]
     Active Substance: MAGNESIUM SULFATE
     Dosage: 4 GRAM, ONCE A DAY
     Route: 042
     Dates: start: 20250624, end: 20250624
  62. MAGNESIUM SULFATE [Concomitant]
     Active Substance: MAGNESIUM SULFATE
     Dosage: 4 GRAM, ONCE A DAY
     Route: 042
     Dates: start: 20250715, end: 20250715
  63. KCL [Concomitant]
     Active Substance: POTASSIUM CHLORIDE
     Indication: Product used for unknown indication
     Dosage: 40 MILLIEQUIVALENT, DAILY
     Route: 042
     Dates: start: 20250415
  64. LENOGRASTIM [Concomitant]
     Active Substance: LENOGRASTIM
     Indication: Product used for unknown indication
     Dosage: 250 MICROGRAM, DAILY
     Route: 042
     Dates: start: 20250416
  65. Phosten [Concomitant]
     Indication: Nutritional supplementation
     Dosage: 20 MILLILITER, ONCE A DAY
     Route: 042
     Dates: start: 20250418, end: 20250420
  66. Fotagel [Concomitant]
     Indication: Product used for unknown indication
     Dosage: 20 MILLILITER, 3 TIMES A DAY
     Route: 048
     Dates: start: 20250416, end: 20250417
  67. TRAMADOL HYDROCHLORIDE [Concomitant]
     Active Substance: TRAMADOL HYDROCHLORIDE
     Indication: Product used for unknown indication
     Dosage: 50 MILLIGRAM
     Route: 042
     Dates: start: 20250314, end: 20250414
  68. TRAMADOL HYDROCHLORIDE [Concomitant]
     Active Substance: TRAMADOL HYDROCHLORIDE
     Dosage: 50 MILLIGRAM
     Route: 042
     Dates: start: 20250414, end: 20250418
  69. VITAMINS [Concomitant]
     Active Substance: VITAMINS
     Indication: Product used for unknown indication
     Dosage: UNK, ONCE A DAY
     Route: 042
     Dates: start: 20250418, end: 20250424
  70. Vacrax [Concomitant]
     Indication: Product used for unknown indication
     Dosage: 200 MILLIGRAM, DAILY
     Route: 042
     Dates: start: 20250420, end: 20250420
  71. Zoylex [Concomitant]
     Indication: Product used for unknown indication
     Dosage: UNK UNK, 3 TIMES A DAY
     Route: 042
     Dates: start: 20250421, end: 20250425
  72. Topisol [Concomitant]
     Indication: Product used for unknown indication
     Dosage: 1 DOSAGE FORM, TWO TIMES A DAY
     Route: 061
     Dates: start: 20250421, end: 20250424
  73. Solondo [Concomitant]
     Indication: Product used for unknown indication
     Dosage: 1 DOSAGE FORM, DAILY
     Route: 065
     Dates: start: 20250416, end: 20250416
  74. AMOXICILLIN [Concomitant]
     Active Substance: AMOXICILLIN
     Indication: Product used for unknown indication
     Dosage: 100 MILLIGRAM, DAILY
     Route: 065
     Dates: start: 20250416, end: 20250416
  75. Profa [Concomitant]
     Indication: Febrile neutropenia
     Dosage: 1 GRAM, ONCE A DAY
     Route: 042
     Dates: start: 20250414, end: 20250414
  76. Profa [Concomitant]
     Dosage: 1 GRAM, ONCE A DAY
     Route: 042
     Dates: start: 20250608, end: 20250608
  77. Teicocin [Concomitant]
     Indication: Febrile neutropenia
     Dosage: 400 MILLIGRAM, ONCE A DAY
     Route: 042
     Dates: start: 20250414, end: 20250416
  78. Tazoperan [Concomitant]
     Indication: Febrile neutropenia
     Dosage: 4.5 GRAM, 3 TIMES A DAY
     Route: 042
     Dates: start: 20250416, end: 20250421
  79. NEUPOGEN [Concomitant]
     Active Substance: FILGRASTIM
     Indication: Febrile neutropenia
     Dosage: 300 MICROGRAM, ONCE A DAY
     Route: 058
     Dates: start: 20250414, end: 20250414
  80. PROPACETAMOL HYDROCHLORIDE [Concomitant]
     Active Substance: PROPACETAMOL HYDROCHLORIDE
     Indication: Febrile neutropenia
     Dosage: 1 GRAM, ONCE A DAY
     Route: 042
     Dates: start: 20250414, end: 20250416
  81. PROPACETAMOL HYDROCHLORIDE [Concomitant]
     Active Substance: PROPACETAMOL HYDROCHLORIDE
     Dosage: 1 GRAM, AS NECESSARY
     Route: 042
     Dates: start: 20250609, end: 20250609
  82. MEPERIDINE [Concomitant]
     Active Substance: MEPERIDINE
     Indication: Febrile neutropenia
     Dosage: 25 GRAM, ONCE A DAY
     Route: 042
     Dates: start: 20250417, end: 20250418
  83. MEPERIDINE [Concomitant]
     Active Substance: MEPERIDINE
     Dosage: 25 GRAM, ONCE A DAY
     Route: 042
     Dates: start: 20250417, end: 20250420
  84. MEPERIDINE [Concomitant]
     Active Substance: MEPERIDINE
     Dosage: 25 MILLIGRAM, AS NECESSARY
     Route: 042
     Dates: start: 20250609, end: 20250610
  85. Vacrax [Concomitant]
     Indication: Product used for unknown indication
     Dosage: 1 DOSAGE FORM, AS NECESSARY
     Route: 061
     Dates: start: 20250402, end: 20250406
  86. Vacrax [Concomitant]
     Dosage: 1 DOSAGE FORM, TWO TIMES A DAY
     Route: 061
     Dates: start: 20250421, end: 20250427
  87. SUPRAX [Concomitant]
     Active Substance: CEFIXIME
     Indication: Product used for unknown indication
     Dosage: 100 MILLIGRAM, TWO TIMES A DAY
     Route: 048
     Dates: start: 20250512, end: 20250518
  88. Dobesil [Concomitant]
     Indication: Product used for unknown indication
     Dosage: 500 MILLIGRAM, TWO TIMES A DAY
     Route: 048
     Dates: start: 20250512, end: 20250518
  89. Stillen [Concomitant]
     Indication: Prophylaxis
     Dosage: 90 MILLIGRAM, TWO TIMES A DAY
     Route: 048
     Dates: start: 20250512, end: 20250518
  90. MAXIPIME [Concomitant]
     Active Substance: CEFEPIME HYDROCHLORIDE
     Indication: Product used for unknown indication
     Dosage: 2 GRAM, 3 TIMES A DAY
     Route: 042
     Dates: start: 20250608, end: 20250616
  91. LYRICA [Concomitant]
     Active Substance: PREGABALIN
     Indication: Product used for unknown indication
     Dosage: 50 MILLIGRAM, ONCE A DAY
     Route: 048

REACTIONS (4)
  - Febrile neutropenia [Recovered/Resolved]
  - Thrombocytopenia [Recovered/Resolved]
  - Stomatitis [Recovered/Resolved]
  - Hyperglycaemia [Recovered/Resolved]

NARRATIVE: CASE EVENT DATE: 20250403
